FAERS Safety Report 10996617 (Version 3)
Quarter: 2015Q2

REPORT INFORMATION
  Report Type: Spontaneous
  Country: US (occurrence: US)
  Receive Date: 20150408
  Receipt Date: 20150422
  Transmission Date: 20150821
  Serious: No
  Sender: FDA-Public Use
  Company Number: US-TEVA-552155ACC

PATIENT
  Age: 25 Year
  Sex: Female
  Weight: 79.45 kg

DRUGS (1)
  1. PLAN B ONE-STEP [Suspect]
     Active Substance: LEVONORGESTREL
     Indication: POST COITAL CONTRACEPTION
     Dates: start: 20150324, end: 20150324

REACTIONS (4)
  - Dysmenorrhoea [Recovered/Resolved]
  - Metrorrhagia [Recovered/Resolved]
  - Menstruation irregular [Recovered/Resolved]
  - Menstruation irregular [Not Recovered/Not Resolved]

NARRATIVE: CASE EVENT DATE: 20150324
